FAERS Safety Report 5275399-7 (Version None)
Quarter: 2007Q1

REPORT INFORMATION
  Report Type: 
  Country: None (occurrence: None)
  Receive Date: 20061219
  Receipt Date: 20060928
  Transmission Date: 20070707
  Serious: Yes (Hospitalization, Other)
  Sender: FDA-Public Use
  Company Number: US-JNJFOC-20061000563

PATIENT
  Age: 16 Year
  Sex: Female
  Weight: 79.6 kg

DRUGS (3)
  1. ORTHO EVRA [Suspect]
     Indication: CONTRACEPTION
     Dosage: 1 DOSE(S), TRANSDERMAL
     Route: 062
     Dates: end: 20060209
  2. IBUPROFEN [Concomitant]
  3. SKELAXIN [Concomitant]

REACTIONS (1)
  - CEREBROVASCULAR ACCIDENT [None]
